FAERS Safety Report 25757764 (Version 2)
Quarter: 2025Q3

REPORT INFORMATION
  Report Type: Report from Study
  Country: IN (occurrence: IN)
  Receive Date: 20250903
  Receipt Date: 20250904
  Transmission Date: 20251020
  Serious: Yes (Death, Other)
  Sender: ELI LILLY AND COMPANY
  Company Number: IN-ELI_LILLY_AND_COMPANY-IN202508028001

PATIENT
  Age: 5 Year
  Sex: Female

DRUGS (1)
  1. OLUMIANT [Suspect]
     Active Substance: BARICITINIB
     Indication: Gene mutation
     Route: 065

REACTIONS (5)
  - Haemophagocytic lymphohistiocytosis [Fatal]
  - Pulmonary haemorrhage [Fatal]
  - Cytomegalovirus infection [Fatal]
  - Pneumonia pseudomonal [Unknown]
  - Off label use [Unknown]
